FAERS Safety Report 10672591 (Version 2)
Quarter: 2015Q1

REPORT INFORMATION
  Report Type: Report from Study
  Country: US (occurrence: US)
  Receive Date: 20141223
  Receipt Date: 20150225
  Transmission Date: 20150720
  Serious: Yes (Other)
  Sender: FDA-Public Use
  Company Number: US-ABBVIE-14K-163-1323402-00

PATIENT
  Age: 61 Year
  Sex: Male
  Weight: 63.56 kg

DRUGS (1)
  1. HUMIRA [Suspect]
     Active Substance: ADALIMUMAB
     Indication: RHEUMATOID ARTHRITIS
     Route: 058
     Dates: start: 2010, end: 2012

REACTIONS (4)
  - Atrial fibrillation [Not Recovered/Not Resolved]
  - Fatigue [Recovered/Resolved]
  - Heart valve incompetence [Not Recovered/Not Resolved]
  - Heart valve stenosis [Not Recovered/Not Resolved]

NARRATIVE: CASE EVENT DATE: 201206
